FAERS Safety Report 7287088-8 (Version None)
Quarter: 2011Q1

REPORT INFORMATION
  Report Type: 
  Country: None (occurrence: None)
  Receive Date: 20110211
  Receipt Date: 20110124
  Transmission Date: 20110831
  Serious: Yes (Other)
  Sender: FDA-Public Use
  Company Number: SI-AMGEN-SVNSP2011001356

PATIENT
  Age: 38 Year
  Sex: Male
  Weight: 89 kg

DRUGS (5)
  1. MEDROL [Concomitant]
     Indication: RHEUMATOID ARTHRITIS
     Dosage: 4 MG, 1X/DAY
     Route: 048
     Dates: start: 20080506
  2. ALFACALCIDOL [Concomitant]
     Dosage: 1 UG, 1X/DAY
     Route: 048
     Dates: start: 20080506
  3. VITAMIN A [Concomitant]
  4. ENBREL [Suspect]
     Indication: RHEUMATOID ARTHRITIS
     Dosage: 50 MG, WEEKLY
     Route: 058
     Dates: start: 20100118, end: 20100419
  5. CALCIUM CARBONATE [Concomitant]
     Dosage: 1 G, 1X/DAY
     Route: 048
     Dates: start: 20080506

REACTIONS (3)
  - HEPATOTOXICITY [None]
  - RHEUMATOID ARTHRITIS [None]
  - TRANSAMINASES INCREASED [None]
